FAERS Safety Report 13511557 (Version 1)
Quarter: 2017Q2

REPORT INFORMATION
  Report Type: Spontaneous
  Country: CA (occurrence: CA)
  Receive Date: 20170504
  Receipt Date: 20170504
  Transmission Date: 20170830
  Serious: Yes (Other)
  Sender: FDA-Public Use
  Company Number: CA-TEVA-765221ACC

PATIENT
  Age: 80 Year
  Sex: Female

DRUGS (5)
  1. WARFARIN [Suspect]
     Active Substance: WARFARIN
     Indication: ATRIAL FIBRILLATION
     Dosage: 3 MILLIGRAM DAILY;
  2. JANUVIA [Concomitant]
     Active Substance: SITAGLIPTIN PHOSPHATE
  3. LORAZEPAM. [Concomitant]
     Active Substance: LORAZEPAM
  4. DIAMICRON MR [Concomitant]
     Active Substance: GLICLAZIDE
  5. SYNTHROID [Concomitant]
     Active Substance: LEVOTHYROXINE SODIUM

REACTIONS (2)
  - Product substitution issue [Recovered/Resolved]
  - International normalised ratio fluctuation [Recovered/Resolved]
